FAERS Safety Report 13793746 (Version 2)
Quarter: 2017Q3

REPORT INFORMATION
  Report Type: Spontaneous
  Country: FR (occurrence: FR)
  Receive Date: 20170726
  Receipt Date: 20170802
  Transmission Date: 20171127
  Serious: Yes (Hospitalization)
  Sender: FDA-Public Use
  Company Number: FR-JNJFOC-20170715613

PATIENT
  Age: 81 Year
  Sex: Female

DRUGS (11)
  1. HYTACAND [Concomitant]
     Active Substance: CANDESARTAN CILEXETIL\HYDROCHLOROTHIAZIDE
     Dosage: 8MG/12.5 MG
     Route: 048
     Dates: end: 201704
  2. RISPERDAL [Suspect]
     Active Substance: RISPERIDONE
     Indication: COGNITIVE DISORDER
     Dosage: 1-0-1
     Route: 048
     Dates: start: 20170427, end: 20170428
  3. RISPERDAL [Suspect]
     Active Substance: RISPERIDONE
     Indication: SLEEP DISORDER
     Dosage: 1-0-1
     Route: 048
     Dates: start: 20170427, end: 20170428
  4. LERCAN [Concomitant]
     Active Substance: LERCANIDIPINE
     Dosage: 1-0-0
     Route: 065
     Dates: end: 201704
  5. RISPERDAL [Suspect]
     Active Substance: RISPERIDONE
     Indication: AGGRESSION
     Dosage: 1-0-1
     Route: 048
     Dates: start: 20170427, end: 20170428
  6. TRANSIPEG [Concomitant]
     Active Substance: POLYETHYLENE GLYCOL 3350
     Route: 048
  7. RISPERDAL [Suspect]
     Active Substance: RISPERIDONE
     Indication: MANIA
     Dosage: 1-0-1
     Route: 048
     Dates: start: 20170427, end: 20170428
  8. RISPERDAL [Suspect]
     Active Substance: RISPERIDONE
     Indication: ABNORMAL BEHAVIOUR
     Dosage: 1-0-1
     Route: 048
     Dates: start: 20170427, end: 20170428
  9. DAFALGAN [Concomitant]
     Active Substance: ACETAMINOPHEN
     Route: 048
  10. XANAX [Suspect]
     Active Substance: ALPRAZOLAM
     Indication: DEPRESSION
     Dosage: 0.5-0-0.5
     Route: 048
     Dates: end: 20170428
  11. EUPANTOL [Concomitant]
     Active Substance: PANTOPRAZOLE SODIUM
     Dosage: 0-0-1
     Route: 048
     Dates: end: 201704

REACTIONS (4)
  - Overdose [Unknown]
  - Somnolence [Recovered/Resolved]
  - Confusional state [Recovered/Resolved]
  - Off label use [Unknown]

NARRATIVE: CASE EVENT DATE: 20170427
